FAERS Safety Report 18754844 (Version 1)
Quarter: 2021Q1

REPORT INFORMATION
  Report Type: Spontaneous
  Country: DE (occurrence: DE)
  Receive Date: 20210119
  Receipt Date: 20210119
  Transmission Date: 20210419
  Serious: Yes (Other)
  Sender: FDA-Public Use
  Company Number: DE-009507513-2101DEU007999

PATIENT
  Age: 67 Year
  Sex: Male
  Weight: 90 kg

DRUGS (1)
  1. INEGY 10 MG/20 MG TABLETTEN [Suspect]
     Active Substance: EZETIMIBE\SIMVASTATIN
     Dosage: 10MG/20MG; ONCE DAILY
     Route: 048
     Dates: start: 201101

REACTIONS (1)
  - Infective tenosynovitis [Not Recovered/Not Resolved]

NARRATIVE: CASE EVENT DATE: 202012
